FAERS Safety Report 19351390 (Version 1)
Quarter: 2021Q2

REPORT INFORMATION
  Report Type: Report from Study
  Country: US (occurrence: US)
  Receive Date: 20210531
  Receipt Date: 20210531
  Transmission Date: 20210717
  Serious: No
  Sender: FDA-Public Use
  Company Number: US-ACADIA PHARMACEUTICALS INC.-ACA-2021-PIM-001713

PATIENT
  Sex: Male
  Weight: 72 kg

DRUGS (16)
  1. RYTARY [Concomitant]
     Active Substance: CARBIDOPA\LEVODOPA
     Dosage: ER 36.25 MG/145 MG THREE CAPSULES TID
  2. CELECOXIB. [Concomitant]
     Active Substance: CELECOXIB
     Dosage: 200 MILLIGRAM PRN
  3. CLONIDINE HCL [Concomitant]
     Active Substance: CLONIDINE HYDROCHLORIDE
     Dosage: 0.1 MG QPM
  4. ASA [Concomitant]
     Active Substance: ASPIRIN
     Dosage: 325 MG TWO AT NIGHT
  5. NUPLAZID [Suspect]
     Active Substance: PIMAVANSERIN TARTRATE
     Indication: PARKINSON^S DISEASE PSYCHOSIS
     Dosage: 34 MILLIGRAM, QD (IN THE MORNING)
     Route: 048
     Dates: start: 20210408, end: 20210419
  6. NUPLAZID [Suspect]
     Active Substance: PIMAVANSERIN TARTRATE
     Indication: DELUSION
  7. GABAPENTIN. [Concomitant]
     Active Substance: GABAPENTIN
     Dosage: 300 MILLIGRAM, QD
  8. OMEPRAZOLE. [Concomitant]
     Active Substance: OMEPRAZOLE
     Dosage: 40 MILLIGRAM, QD
  9. GOCOVRI [Suspect]
     Active Substance: AMANTADINE
     Dosage: 137 MG ER QPM
  10. LISINOPRIL. [Concomitant]
     Active Substance: LISINOPRIL
     Dosage: 20 MILLIGRAM, QD
  11. ZYRTEC [Concomitant]
     Active Substance: CETIRIZINE HYDROCHLORIDE
     Dosage: 10 MILLIGRAM, QD
  12. FAMOTIDINE. [Concomitant]
     Active Substance: FAMOTIDINE
     Dosage: 20 MILLIGRAM, BID (TWO AT NIGHT)
  13. RYTARY [Concomitant]
     Active Substance: CARBIDOPA\LEVODOPA
     Dosage: ER 23.75 MG/95 MG QD
  14. FLUTICASONE PROPIONATE. [Concomitant]
     Active Substance: FLUTICASONE PROPIONATE
     Dosage: 50 MCG TWO SPRAYS IN EACH NOSTRIL ONCE DAILY
     Route: 045
  15. BACLOFEN. [Concomitant]
     Active Substance: BACLOFEN
     Dosage: 10 MILLIGRAM, BID
  16. NUPLAZID [Suspect]
     Active Substance: PIMAVANSERIN TARTRATE
     Indication: HALLUCINATION

REACTIONS (6)
  - Screaming [Recovered/Resolved]
  - Nightmare [Recovered/Resolved]
  - Poor quality sleep [Recovered/Resolved]
  - Ill-defined disorder [Recovered/Resolved]
  - Tremor [Recovered/Resolved]
  - Somnolence [Recovered/Resolved]
